FAERS Safety Report 18361267 (Version 4)
Quarter: 2021Q2

REPORT INFORMATION
  Report Type: Spontaneous
  Country: FR (occurrence: FR)
  Receive Date: 20201008
  Receipt Date: 20210615
  Transmission Date: 20210717
  Serious: Yes (Other)
  Sender: FDA-Public Use
  Company Number: FR-MYLANLABS-2020M1084434

PATIENT
  Age: 71 Year
  Sex: Female

DRUGS (13)
  1. PIPERACILLIN/TAZOBACTAM [Suspect]
     Active Substance: PIPERACILLIN SODIUM\TAZOBACTAM SODIUM
     Indication: ANTIBIOTIC PROPHYLAXIS
     Dosage: UNK, TID
     Route: 065
  2. PHENOXYMETHYLPENICILLIN [Suspect]
     Active Substance: PENICILLIN V
     Indication: SKIN TEST
     Dosage: UNK
  3. CLEMIZOLE PENICILLIN [Suspect]
     Active Substance: CLEMIZOLE PENICILLIN
     Indication: SKIN TEST
     Dosage: UNK
  4. IMIPENEM [Suspect]
     Active Substance: IMIPENEM
     Indication: DRUG PROVOCATION TEST
     Dosage: UNK
  5. MEROPENEM                          /01250502/ [Concomitant]
     Active Substance: MEROPENEM
     Indication: SKIN TEST
     Dosage: UNK
  6. PIPERACILLIN/TAZOBACTAM [Suspect]
     Active Substance: PIPERACILLIN SODIUM\TAZOBACTAM SODIUM
     Indication: SKIN TEST
     Dosage: UNK
     Route: 065
  7. CEFTRIAXONE. [Concomitant]
     Active Substance: CEFTRIAXONE
     Indication: DRUG PROVOCATION TEST
     Dosage: UNK
  8. CILASTATIN/IMIPENEM [Suspect]
     Active Substance: CILASTATIN SODIUM\IMIPENEM
     Indication: SKIN TEST
     Dosage: UNK
  9. CILASTATIN/IMIPENEM [Suspect]
     Active Substance: CILASTATIN SODIUM\IMIPENEM
     Indication: DRUG PROVOCATION TEST
  10. AMOXICILLIN                        /00249602/ [Suspect]
     Active Substance: AMOXICILLIN
     Indication: SKIN TEST
     Dosage: UNK
  11. AMOXICILLIN/CLAVULANIC ACID [Suspect]
     Active Substance: AMOXICILLIN\CLAVULANIC ACID
     Indication: PROPHYLAXIS
     Dosage: UNK
     Route: 042
  12. ERTAPENEM SODIUM [Concomitant]
     Active Substance: ERTAPENEM SODIUM
     Indication: SKIN TEST
     Dosage: UNK, AT A 20 MG/ML CONCENTRATION
  13. CEFPODOXIME [Concomitant]
     Active Substance: CEFPODOXIME
     Indication: DRUG PROVOCATION TEST
     Dosage: UNK

REACTIONS (5)
  - Skin test positive [Unknown]
  - Type IV hypersensitivity reaction [Recovered/Resolved]
  - Rash maculo-papular [Recovered/Resolved with Sequelae]
  - Cross sensitivity reaction [Unknown]
  - Eosinophilia [Unknown]
